FAERS Safety Report 19074249 (Version 1)
Quarter: 2021Q1

REPORT INFORMATION
  Report Type: Spontaneous
  Country: CA (occurrence: CA)
  Receive Date: 20210330
  Receipt Date: 20210330
  Transmission Date: 20210420
  Serious: Yes (Hospitalization, Other)
  Sender: FDA-Public Use
  Company Number: CA-TAKEDA-2021TUS018749

PATIENT
  Sex: Female

DRUGS (5)
  1. 476 (MESALAZINE/MESALAMINE) [Suspect]
     Active Substance: MESALAMINE
     Indication: PRODUCT USED FOR UNKNOWN INDICATION
     Dosage: UNK
     Route: 064
  2. ESOMEPRAZOLE. [Suspect]
     Active Substance: ESOMEPRAZOLE MAGNESIUM
     Indication: PRODUCT USED FOR UNKNOWN INDICATION
     Route: 064
  3. RANITIDINE. [Suspect]
     Active Substance: RANITIDINE
     Indication: PRODUCT USED FOR UNKNOWN INDICATION
     Route: 064
  4. AZATHIOPRINE. [Suspect]
     Active Substance: AZATHIOPRINE
     Indication: PRODUCT USED FOR UNKNOWN INDICATION
     Route: 064
  5. FIBRINOGEN [Suspect]
     Active Substance: FIBRINOGEN HUMAN
     Indication: DRUG THERAPY
     Route: 064

REACTIONS (5)
  - Foetal anaemia [Recovered/Resolved]
  - Foetal growth restriction [Recovered/Resolved]
  - Haemorrhage foetal [Recovered/Resolved]
  - Foetal exposure during pregnancy [Recovered/Resolved]
  - Haemorrhage in pregnancy [Recovered/Resolved]
